FAERS Safety Report 8949809 (Version 2)
Quarter: 2012Q4

REPORT INFORMATION
  Report Type: Report from Study
  Country: US (occurrence: US)
  Receive Date: 20121206
  Receipt Date: 20121227
  Transmission Date: 20130627
  Serious: Yes (Hospitalization, Other)
  Sender: FDA-Public Use
  Company Number: US-ROCHE-1161565

PATIENT
  Age: 56 Year
  Sex: Female
  Weight: 57.66 kg

DRUGS (20)
  1. BEVACIZUMAB [Suspect]
     Indication: OVARIAN CANCER
     Route: 065
     Dates: start: 20120620, end: 20120801
  2. BEVACIZUMAB [Suspect]
     Dosage: the patient received cycle 4 and 5
     Route: 065
     Dates: start: 20121022, end: 20121119
  3. TAXOL [Suspect]
     Indication: OVARIAN CANCER
     Route: 065
     Dates: start: 20120620, end: 20120801
  4. TAXOL [Suspect]
     Route: 065
     Dates: start: 20121022, end: 20121119
  5. CARBOPLATIN [Suspect]
     Indication: OVARIAN CANCER
     Dosage: AUC 6
     Route: 065
     Dates: start: 20120620, end: 20120801
  6. CARBOPLATIN [Suspect]
     Dosage: AUC 6,cycle 4 and 5
     Route: 065
     Dates: start: 20121022, end: 20121119
  7. KCL [Concomitant]
     Route: 065
  8. NORMAL SALINE [Concomitant]
     Dosage: 1/2
     Route: 065
  9. REGLAN [Concomitant]
  10. PRILOSEC [Concomitant]
  11. ZOCOR [Concomitant]
  12. DYAZIDE [Concomitant]
  13. ADVIL [Concomitant]
  14. MELATONIN [Concomitant]
  15. COMPAZINE [Concomitant]
  16. GLYBURIDE [Concomitant]
  17. ZOFRAN [Concomitant]
  18. TRAMADOL [Concomitant]
  19. DULCOLAX (BISACODYL) [Concomitant]
  20. MIRALAX [Concomitant]

REACTIONS (5)
  - Renal failure acute [Recovered/Resolved]
  - Nausea [Unknown]
  - Vomiting [Unknown]
  - Constipation [Recovered/Resolved]
  - Impaired healing [Unknown]
